FAERS Safety Report 12263015 (Version 4)
Quarter: 2016Q4

REPORT INFORMATION
  Report Type: Spontaneous
  Country: US (occurrence: US)
  Receive Date: 20160413
  Receipt Date: 20161007
  Transmission Date: 20170207
  Serious: Yes (Death, Hospitalization)
  Sender: FDA-Public Use
  Company Number: US-PFIZER INC-2016202700

PATIENT
  Age: 66 Year
  Sex: Male
  Weight: 84 kg

DRUGS (1)
  1. RAPAMUNE [Suspect]
     Active Substance: SIROLIMUS
     Indication: PROPHYLAXIS AGAINST TRANSPLANT REJECTION
     Dosage: 2 MG, 1X/DAY
     Route: 048
     Dates: start: 20131219, end: 20160310

REACTIONS (7)
  - Hepatocellular carcinoma [Fatal]
  - Product use issue [Unknown]
  - Sepsis [Unknown]
  - Sepsis [Fatal]
  - Endocarditis [Fatal]
  - Neoplasm recurrence [Fatal]
  - Klebsiella bacteraemia [Fatal]

NARRATIVE: CASE EVENT DATE: 20131219
